FAERS Safety Report 7854783-9 (Version None)
Quarter: 2011Q3

REPORT INFORMATION
  Report Type: 
  Country: None (occurrence: None)
  Receive Date: 20110916
  Receipt Date: 20100727
  Transmission Date: 20111222
  Serious: Yes (Hospitalization)
  Sender: FDA-Public Use
  Company Number: 2010-00773

PATIENT
  Age: 70 Year
  Sex: Male
  Weight: 87.5442 kg

DRUGS (1)
  1. MELOXICAM [Suspect]
     Indication: ARTHRITIS
     Dosage: 15 MG (1 IN 1 D),ORAL
     Route: 048
     Dates: start: 20090430, end: 20090515

REACTIONS (2)
  - RECTAL HAEMORRHAGE [None]
  - GASTROINTESTINAL ULCER [None]
